FAERS Safety Report 26169318 (Version 1)
Quarter: 2025Q4

REPORT INFORMATION
  Report Type: Spontaneous
  Country: US (occurrence: US)
  Receive Date: 20251217
  Receipt Date: 20251217
  Transmission Date: 20260118
  Serious: No
  Sender: Genetix Biotherapeutics
  Company Number: US-GENETIX BIOTHERAPEUTICS INC.-US-BBB-25-00078

PATIENT
  Age: 19 Year

DRUGS (2)
  1. LYFGENIA [Suspect]
     Active Substance: LOVOTIBEGLOGENE AUTOTEMCEL
     Indication: Sickle cell disease
     Dosage: UNK UNK, SINGLE
     Route: 065
  2. BUSULFAN [Suspect]
     Active Substance: BUSULFAN
     Indication: Bone marrow conditioning regimen
     Dosage: UNK, UNK
     Route: 065

REACTIONS (7)
  - Mucosal inflammation [Recovered/Resolved]
  - Skin exfoliation [Recovered/Resolved]
  - Alopecia [Recovered/Resolved]
  - Stomatitis [Recovered/Resolved]
  - Fatigue [Recovered/Resolved]
  - Vomiting [Recovered/Resolved]
  - Nausea [Recovered/Resolved]
